FAERS Safety Report 7024932-3 (Version None)
Quarter: 2010Q4

REPORT INFORMATION
  Report Type: 
  Country: None (occurrence: None)
  Receive Date: 20101001
  Receipt Date: 20100921
  Transmission Date: 20110411
  Serious: Yes (Hospitalization, Other)
  Sender: FDA-Public Use
  Company Number: US-PFIZER INC-2010123642

PATIENT
  Age: 67 Year
  Sex: Female
  Weight: 63.8 kg

DRUGS (16)
  1. MORPHINE SULFATE [Suspect]
     Indication: RADIATION ASSOCIATED PAIN
     Dosage: 30 MG, 3X/DAY
     Dates: end: 20100725
  2. NEURONTIN [Suspect]
     Indication: RADIATION ASSOCIATED PAIN
     Dosage: 900 MG, 3X/DAY
  3. NEURONTIN [Suspect]
     Indication: MYOSITIS
  4. OXYCONTIN [Suspect]
     Indication: RADIATION ASSOCIATED PAIN
     Dosage: 5 MG, Q2H
     Route: 048
     Dates: start: 20080101
  5. OXYCONTIN [Suspect]
     Indication: MYOSITIS
  6. DEXAMETHASONE [Suspect]
     Dosage: UNK
  7. VICODIN [Concomitant]
  8. FOSAMAX [Concomitant]
  9. ASCORBIC ACID [Concomitant]
  10. ERGOCALCIFEROL [Concomitant]
  11. FOLIC ACID [Concomitant]
  12. GARLIC [Concomitant]
  13. SYNTHROID [Concomitant]
  14. MULTI-VITAMINS [Concomitant]
  15. K-DUR [Concomitant]
  16. VITAMIN E [Concomitant]

REACTIONS (2)
  - ENCEPHALOPATHY [None]
  - NEUROTOXICITY [None]
